FAERS Safety Report 5979962-7 (Version None)
Quarter: 2008Q4

REPORT INFORMATION
  Report Type: 
  Country: None (occurrence: None)
  Receive Date: 20081205
  Receipt Date: 20081128
  Transmission Date: 20090506
  Serious: Yes (Other)
  Sender: FDA-Public Use
  Company Number: AR-JNJFOC-20081003006

PATIENT
  Sex: Male
  Weight: 77 kg

DRUGS (1)
  1. IBUPIRAC 400MG [Suspect]
     Indication: PAIN IN JAW
     Route: 048

REACTIONS (5)
  - ABASIA [None]
  - COUGH [None]
  - HYPERSENSITIVITY [None]
  - NASAL CONGESTION [None]
  - PNEUMONITIS [None]
